FAERS Safety Report 15559466 (Version 5)
Quarter: 2019Q2

REPORT INFORMATION
  Report Type: Report from Study
  Country: US (occurrence: US)
  Receive Date: 20181029
  Receipt Date: 20190523
  Transmission Date: 20190711
  Serious: Yes (Other)
  Sender: FDA-Public Use
  Company Number: US-ASTELLAS-2018US045486

PATIENT
  Age: 89 Year
  Sex: Male

DRUGS (28)
  1. COQ 10 [Concomitant]
     Active Substance: UBIDECARENONE
     Indication: DIURETIC THERAPY
     Route: 065
  2. MONTELUKAST [Concomitant]
     Active Substance: MONTELUKAST SODIUM
     Indication: HYPERSENSITIVITY
     Route: 065
  3. KARELA [Concomitant]
     Indication: DIABETES MELLITUS MANAGEMENT
     Route: 065
  4. VITAMIN D3 [Concomitant]
     Active Substance: CHOLECALCIFEROL
     Indication: VITAMIN SUPPLEMENTATION
     Dosage: UNK UNK, ONCE DAILY
     Route: 065
  5. ENZALUTAMIDE [Suspect]
     Active Substance: ENZALUTAMIDE
     Route: 048
  6. CARVEDILOL. [Concomitant]
     Active Substance: CARVEDILOL
     Indication: HYPERTENSION
     Route: 065
  7. CARVEDILOL. [Concomitant]
     Active Substance: CARVEDILOL
     Route: 065
  8. SUPER B                            /00176001/ [Concomitant]
     Indication: PRODUCT USED FOR UNKNOWN INDICATION
     Route: 065
  9. NOVOLOG [Concomitant]
     Active Substance: INSULIN ASPART
     Indication: TYPE 2 DIABETES MELLITUS
     Dosage: 3 UNITS, UNKNOWN FREQ. WITH DEALS
     Route: 065
  10. COD LIVER OIL [Concomitant]
     Active Substance: COD LIVER OIL
     Indication: SUPPLEMENTATION THERAPY
     Dosage: 415 MG, UNKNOWN FREQ.(MENTIONED AS THRICE ONLY)
     Route: 065
  11. ENZALUTAMIDE [Suspect]
     Active Substance: ENZALUTAMIDE
     Indication: PROSTATE CANCER
     Route: 048
     Dates: start: 20180816
  12. COQ 10 [Concomitant]
     Active Substance: UBIDECARENONE
     Indication: CARDIAC DISORDER
  13. ASPIRIN. [Concomitant]
     Active Substance: ASPIRIN
     Indication: BLOOD DISORDER
     Route: 065
  14. GABAPENTIN. [Concomitant]
     Active Substance: GABAPENTIN
     Indication: NEUROPATHY PERIPHERAL
     Route: 065
  15. PANTOPRAZOLE [Concomitant]
     Active Substance: PANTOPRAZOLE
     Indication: GASTROOESOPHAGEAL REFLUX DISEASE
     Route: 048
  16. BUMEX [Concomitant]
     Active Substance: BUMETANIDE
     Indication: DIURETIC THERAPY
     Route: 065
  17. ENZALUTAMIDE [Suspect]
     Active Substance: ENZALUTAMIDE
     Route: 048
  18. MAGNESIUM [Concomitant]
     Active Substance: MAGNESIUM
     Indication: FATIGUE
     Route: 065
  19. NORVASC [Concomitant]
     Active Substance: AMLODIPINE BESYLATE
     Indication: BLOOD PRESSURE MEASUREMENT
     Route: 065
  20. PROLIA [Concomitant]
     Active Substance: DENOSUMAB
     Indication: PROSTATE CANCER
     Dosage: UNK UNK, EVERY 6 MONTHS
     Route: 065
  21. HYDRALAZINE [Concomitant]
     Active Substance: HYDRALAZINE HYDROCHLORIDE
     Indication: HYPERTENSION
     Route: 065
  22. INSULIN [Concomitant]
     Active Substance: INSULIN NOS
     Indication: DIABETES MELLITUS
     Dosage: UNK UNK, UNKNOWN FREQ.
     Route: 065
  23. ROSUVASTATIN. [Concomitant]
     Active Substance: ROSUVASTATIN
     Indication: BLOOD CHOLESTEROL
     Dosage: 40 MG, ONCE DAILY AT EVENING
     Route: 065
  24. ENZALUTAMIDE [Suspect]
     Active Substance: ENZALUTAMIDE
     Route: 048
  25. TURMERIC                           /01079601/ [Concomitant]
     Active Substance: HERBALS\TURMERIC
     Indication: ANTIINFLAMMATORY THERAPY
     Dosage: 500-1000 MG, ONCE DAILY
     Route: 065
  26. ENZALUTAMIDE [Suspect]
     Active Substance: ENZALUTAMIDE
     Route: 048
  27. AMLODIPINE [Concomitant]
     Active Substance: AMLODIPINE BESYLATE
     Indication: HYPERTENSION
     Route: 065
  28. CALCIUM CITRATE [Concomitant]
     Active Substance: CALCIUM CITRATE
     Indication: BONE DISORDER
     Route: 065

REACTIONS (11)
  - Abdominal distension [Not Recovered/Not Resolved]
  - Dysphagia [Unknown]
  - Inappropriate schedule of product administration [Unknown]
  - Sleep disorder [Not Recovered/Not Resolved]
  - Weight increased [Not Recovered/Not Resolved]
  - Fluid retention [Unknown]
  - Peripheral swelling [Not Recovered/Not Resolved]
  - Glycosylated haemoglobin increased [Unknown]
  - General physical condition abnormal [Not Recovered/Not Resolved]
  - Chronic kidney disease [Not Recovered/Not Resolved]
  - Glycosylated haemoglobin increased [Unknown]

NARRATIVE: CASE EVENT DATE: 20181006
